FAERS Safety Report 7353729-X (Version None)
Quarter: 2011Q1

REPORT INFORMATION
  Report Type: 
  Country: None (occurrence: None)
  Receive Date: 20110315
  Receipt Date: 20110303
  Transmission Date: 20110831
  Serious: Yes (Other)
  Sender: FDA-Public Use
  Company Number: US-SANOFI-AVENTIS-2011SA005425

PATIENT
  Age: 55 Year
  Sex: Male
  Weight: 77.8 kg

DRUGS (7)
  1. TRASTUZUMAB [Suspect]
     Route: 041
  2. OXALIPLATIN [Suspect]
     Route: 041
     Dates: start: 20101029, end: 20101029
  3. FLUOROURACIL [Suspect]
     Route: 041
     Dates: start: 20101029, end: 20101029
  4. FLUOROURACIL [Suspect]
     Route: 041
  5. OXALIPLATIN [Suspect]
     Route: 041
  6. TRASTUZUMAB [Suspect]
     Route: 041
     Dates: start: 20101112, end: 20101112
  7. FOLINIC ACID [Suspect]
     Route: 041

REACTIONS (3)
  - RETINAL HAEMORRHAGE [None]
  - EYE HAEMORRHAGE [None]
  - PAPILLOEDEMA [None]
